FAERS Safety Report 6663597-7 (Version None)
Quarter: 2010Q2

REPORT INFORMATION
  Report Type: 
  Country: None (occurrence: None)
  Receive Date: 20100401
  Receipt Date: 20100326
  Transmission Date: 20101027
  Serious: Yes (Hospitalization)
  Sender: FDA-Public Use
  Company Number: BG-ROCHE-684615

PATIENT
  Sex: Female
  Weight: 69 kg

DRUGS (3)
  1. TOCILIZUMAB [Suspect]
     Indication: RHEUMATOID ARTHRITIS
     Dosage: LAST DOSE PRIOR TO SAE: 12 JANUARY 2010.
     Route: 042
     Dates: start: 20060510, end: 20100210
  2. TOCILIZUMAB [Suspect]
     Dosage: PREVIOUSLY ENROLLED IN WA 17822 AND RECEIVED TOCILIZUMAB.
     Route: 042
  3. METHOTREXATE [Suspect]
     Indication: RHEUMATOID ARTHRITIS
     Dosage: LAST DOSE PRIOR TO SAE: 08 FEBRUARY 2010.
     Route: 048
     Dates: start: 20030401

REACTIONS (2)
  - CERVICAL POLYP [None]
  - CERVIX CARCINOMA [None]
